FAERS Safety Report 9338672 (Version 2)
Quarter: 2013Q2

REPORT INFORMATION
  Report Type: Spontaneous
  Country: US (occurrence: US)
  Receive Date: 20130610
  Receipt Date: 20130610
  Transmission Date: 20140414
  Serious: No
  Sender: FDA-Public Use
  Company Number: US-BRISTOL-MYERS SQUIBB COMPANY-15721541

PATIENT
  Sex: Male

DRUGS (1)
  1. EFAVIRENZ TABS [Suspect]
     Route: 048

REACTIONS (1)
  - Galactorrhoea [Unknown]
